FAERS Safety Report 16714615 (Version 2)
Quarter: 2020Q2

REPORT INFORMATION
  Report Type: Spontaneous
  Country: PT (occurrence: PT)
  Receive Date: 20190819
  Receipt Date: 20200523
  Transmission Date: 20200713
  Serious: Yes (Hospitalization, Other)
  Sender: FDA-Public Use
  Company Number: PT-UNICHEM PHARMACEUTICALS (USA) INC-UCM201908-000304

PATIENT
  Age: 51 Year
  Sex: Female

DRUGS (11)
  1. GESTODENE [Suspect]
     Active Substance: GESTODENE
     Indication: ORAL CONTRACEPTION
  2. CASCARA SAGRADA [Suspect]
     Active Substance: FRANGULA PURSHIANA BARK
     Indication: WEIGHT DECREASED
  3. METFORMIN [Suspect]
     Active Substance: METFORMIN HYDROCHLORIDE
     Indication: WEIGHT DECREASED
  4. LEVOTHYROXINE. [Concomitant]
     Active Substance: LEVOTHYROXINE
     Indication: HYPOTHYROIDISM
  5. BUPROPION. [Suspect]
     Active Substance: BUPROPION
     Indication: WEIGHT DECREASED
  6. HOODIA GORDONII [Suspect]
     Active Substance: DIETARY SUPPLEMENT
     Indication: WEIGHT DECREASED
  7. ORANGE EXTRACT [Suspect]
     Active Substance: DIETARY SUPPLEMENT\HERBALS
     Indication: WEIGHT DECREASED
  8. FUROSEMIDE. [Suspect]
     Active Substance: FUROSEMIDE
     Indication: WEIGHT DECREASED
  9. TOPIRAMATE. [Suspect]
     Active Substance: TOPIRAMATE
     Indication: WEIGHT DECREASED
  10. ETHINYLESTRADIOL [Suspect]
     Active Substance: ETHINYL ESTRADIOL
     Indication: ORAL CONTRACEPTION
  11. CHLORDIAZEPOXIDE. [Suspect]
     Active Substance: CHLORDIAZEPOXIDE
     Indication: WEIGHT DECREASED

REACTIONS (2)
  - Cerebral venous thrombosis [Recovered/Resolved]
  - Drug interaction [Unknown]
